FAERS Safety Report 17664627 (Version 1)
Quarter: 2020Q2

REPORT INFORMATION
  Report Type: Spontaneous
  Country: US (occurrence: US)
  Receive Date: 20200414
  Receipt Date: 20200414
  Transmission Date: 20200713
  Serious: Yes (Death)
  Sender: FDA-Public Use
  Company Number: US-PFIZER INC-2020150195

PATIENT
  Age: 27 Year
  Sex: Female

DRUGS (3)
  1. MEPERIDINE [Concomitant]
     Active Substance: MEPERIDINE
     Dosage: 100 MG, UNK (INTRAMUSCULAR INJECTION)
     Route: 030
  2. TRILENE [Concomitant]
     Dosage: UNK (DRAW ONLY THREE BREATHS)
  3. LIDOCAINE HCL [Suspect]
     Active Substance: LIDOCAINE HYDROCHLORIDE
     Indication: LOCAL ANAESTHESIA
     Dosage: 200 MG, UNK (RIGHT PUDENDAL BLOCK WITH 10 ML OF 2% LIDOCAINE)

REACTIONS (4)
  - Cyanosis [Fatal]
  - Respiratory arrest [Fatal]
  - Toxicity to various agents [Fatal]
  - Seizure [Fatal]
